FAERS Safety Report 14241457 (Version 1)
Quarter: 2017Q4

REPORT INFORMATION
  Report Type: Spontaneous
  Country: CA (occurrence: CA)
  Receive Date: 20171201
  Receipt Date: 20171201
  Transmission Date: 20180321
  Serious: Yes (Other)
  Sender: FDA-Public Use
  Company Number: CA-ASTRAZENECA-2017SF21165

PATIENT
  Age: 70 Year
  Sex: Female

DRUGS (3)
  1. ANASTROZOLE. [Suspect]
     Active Substance: ANASTROZOLE
     Indication: BREAST CANCER
     Route: 048
     Dates: end: 201105
  2. TAMOXIFEN [Suspect]
     Active Substance: TAMOXIFEN
     Indication: BREAST CANCER
     Route: 048
     Dates: end: 201105
  3. FASLODEX [Suspect]
     Active Substance: FULVESTRANT
     Indication: BREAST CANCER
     Route: 030
     Dates: start: 201708

REACTIONS (6)
  - Toxicity to various agents [Unknown]
  - Breast cancer recurrent [Not Recovered/Not Resolved]
  - Postoperative wound complication [Unknown]
  - Rheumatoid arthritis [Unknown]
  - Hyperhidrosis [Recovered/Resolved]
  - Malignant neoplasm progression [Not Recovered/Not Resolved]
